FAERS Safety Report 10374577 (Version 1)
Quarter: 2014Q3

REPORT INFORMATION
  Report Type: Spontaneous
  Country: US (occurrence: None)
  Receive Date: 20140808
  Receipt Date: 20140808
  Transmission Date: 20150326
  Serious: No
  Sender: FDA-Public Use
  Company Number: None

PATIENT
  Age: 29 Year
  Sex: Male
  Weight: 72.58 kg

DRUGS (1)
  1. ESCITALOPRAM [Suspect]
     Active Substance: ESCITALOPRAM OXALATE
     Indication: DEPRESSION
     Dosage: 1 PILL ONCE DAILY TAKEN BY MOUTH
     Route: 048
     Dates: start: 20140323, end: 20140518

REACTIONS (5)
  - Sexual dysfunction [None]
  - Loss of libido [None]
  - Depression [None]
  - Suicidal ideation [None]
  - Decreased activity [None]

NARRATIVE: CASE EVENT DATE: 20140505
